FAERS Safety Report 14066559 (Version 1)
Quarter: 2017Q4

REPORT INFORMATION
  Report Type: Spontaneous
  Country: US (occurrence: None)
  Receive Date: 20171008
  Receipt Date: 20171008
  Transmission Date: 20180321
  Serious: Yes (Disabling, Other)
  Sender: FDA-Public Use
  Company Number: None

PATIENT
  Age: 73 Year
  Sex: Female
  Weight: 59.42 kg

DRUGS (13)
  1. FISH OIL [Concomitant]
     Active Substance: FISH OIL
  2. GABAPENTIN. [Concomitant]
     Active Substance: GABAPENTIN
  3. RISPERDAL [Suspect]
     Active Substance: RISPERIDONE
     Indication: DEPRESSION
     Route: 048
     Dates: start: 20140908, end: 20170104
  4. REQUIP [Concomitant]
     Active Substance: ROPINIROLE HYDROCHLORIDE
  5. L-METHYLFOLATE [Concomitant]
     Active Substance: LEVOMEFOLIC ACID
  6. PRESERVISION AREDS 2 [Concomitant]
     Active Substance: MINERALS\VITAMINS
  7. VIT. D3 [Concomitant]
  8. MULTIVITAMIN [Concomitant]
     Active Substance: VITAMINS
  9. ASPIRIN. [Concomitant]
     Active Substance: ASPIRIN
  10. WELLBUTRIN [Concomitant]
     Active Substance: BUPROPION HYDROCHLORIDE
  11. CALCIUM [Concomitant]
     Active Substance: CALCIUM
  12. COLACE [Concomitant]
     Active Substance: DOCUSATE SODIUM
  13. MIRALAX [Concomitant]
     Active Substance: POLYETHYLENE GLYCOL 3350

REACTIONS (1)
  - Restless legs syndrome [None]

NARRATIVE: CASE EVENT DATE: 201409
